FAERS Safety Report 5537086-7 (Version None)
Quarter: 2007Q4

REPORT INFORMATION
  Report Type: 
  Country: None (occurrence: None)
  Receive Date: 20071120
  Receipt Date: 20070124
  Transmission Date: 20080405
  Serious: Yes (Other)
  Sender: FDA-Public Use
  Company Number: 33851

PATIENT
  Weight: 78.4723 kg

DRUGS (2)
  1. METHOTREXATE [Suspect]
     Indication: ECTOPIC PREGNANCY
     Dosage: 904.02MG/IM DIVIDED DOSE GLUTEAL
     Route: 030
     Dates: start: 20060906
  2. METHOTREXATE [Suspect]
     Indication: ECTOPIC PREGNANCY
     Dosage: 904.02MG/IM DIVIDED DOSE GLUTEAL
     Route: 030
     Dates: start: 20060914

REACTIONS (1)
  - DRUG INEFFECTIVE [None]
